FAERS Safety Report 4918569-7 (Version None)
Quarter: 2006Q1

REPORT INFORMATION
  Report Type: 
  Country: None (occurrence: None)
  Receive Date: 20060222
  Receipt Date: 20060210
  Transmission Date: 20060701
  Serious: Yes (Death, Other)
  Sender: FDA-Public Use
  Company Number: CA-BRISTOL-MYERS SQUIBB COMPANY-13282280

PATIENT
  Age: 27 Year
  Sex: Female

DRUGS (2)
  1. HYDREA [Suspect]
  2. INTRON A [Suspect]

REACTIONS (11)
  - ANAEMIA [None]
  - CHEST PAIN [None]
  - COUGH [None]
  - LEUKOPENIA [None]
  - LUNG INFILTRATION [None]
  - MYELOFIBROSIS [None]
  - PLATELET COUNT INCREASED [None]
  - PULMONARY THROMBOSIS [None]
  - PULMONARY VASCULITIS [None]
  - PYREXIA [None]
  - SEPSIS [None]
